FAERS Safety Report 9720666 (Version 4)
Quarter: 2014Q1

REPORT INFORMATION
  Report Type: Spontaneous
  Country: JP (occurrence: JP)
  Receive Date: 20131129
  Receipt Date: 20140313
  Transmission Date: 20141002
  Serious: Yes (Death, Other)
  Sender: FDA-Public Use
  Company Number: PHHY2013JP137171

PATIENT
  Age: 49 Year
  Sex: Female

DRUGS (4)
  1. ZOMETA [Suspect]
     Indication: METASTASES TO BONE
     Route: 041
     Dates: start: 200611, end: 200702
  2. GOSERELIN [Suspect]
     Indication: METASTASES TO BONE
     Dosage: UNK
     Dates: start: 200611
  3. TAMOXIFEN [Suspect]
     Indication: METASTASES TO BONE
     Dosage: UNK
     Dates: start: 200611
  4. PACLITAXEL [Suspect]

REACTIONS (7)
  - Hepatic failure [Fatal]
  - Hepatic cirrhosis [Fatal]
  - Ascites [Fatal]
  - Metastases to bone [Unknown]
  - Metastases to liver [Unknown]
  - Malignant neoplasm progression [Unknown]
  - Oedema [Unknown]
